FAERS Safety Report 14436382 (Version 1)
Quarter: 2018Q1

REPORT INFORMATION
  Report Type: Spontaneous
  Country: US (occurrence: US)
  Receive Date: 20180124
  Receipt Date: 20180124
  Transmission Date: 20180509
  Serious: No
  Sender: FDA-Public Use
  Company Number: None

PATIENT
  Age: 39 Year
  Sex: Male

DRUGS (1)
  1. VARUBI [Suspect]
     Active Substance: ROLAPITANT
     Indication: PREMEDICATION
     Dosage: ?          OTHER FREQUENCY:Q 21 DAYS;?
     Route: 041
     Dates: start: 20180103, end: 20180124

REACTIONS (4)
  - Chest discomfort [None]
  - Urticaria [None]
  - Infusion related reaction [None]
  - Flushing [None]

NARRATIVE: CASE EVENT DATE: 20180124
